FAERS Safety Report 5852834-4 (Version None)
Quarter: 2008Q3

REPORT INFORMATION
  Report Type: 
  Country: None (occurrence: None)
  Receive Date: 20080821
  Receipt Date: 20080808
  Transmission Date: 20090109
  Serious: Yes (Hospitalization)
  Sender: FDA-Public Use
  Company Number: FR-ELI_LILLY_AND_COMPANY-FR200805001814

PATIENT
  Age: 83 Year
  Sex: Female
  Weight: 51 kg

DRUGS (8)
  1. FORTEO [Suspect]
     Indication: OSTEOPOROSIS
     Dosage: 20 UG, DAILY (1/D)
     Route: 058
     Dates: start: 20080225, end: 20080430
  2. COVERSYL /FRA/ [Concomitant]
     Dosage: 8 MG, UNK
     Route: 065
  3. PLAVIX [Concomitant]
     Dosage: UNK, UNKNOWN
     Route: 065
  4. AMLOR [Concomitant]
     Dosage: 5 MG, UNK
     Route: 065
  5. DEBRIDAT [Concomitant]
     Dosage: UNK, UNKNOWN
     Route: 065
  6. SKENAN [Concomitant]
     Dosage: 10 MG, UNK
     Route: 065
  7. MOPRAL [Concomitant]
     Dosage: UNK, UNKNOWN
     Route: 065
  8. DOLIPRANE [Concomitant]
     Dosage: UNK, UNKNOWN
     Route: 065

REACTIONS (2)
  - FALL [None]
  - WRIST FRACTURE [None]
